FAERS Safety Report 7967462-4 (Version None)
Quarter: 2011Q4

REPORT INFORMATION
  Report Type: 
  Country: None (occurrence: None)
  Receive Date: 20111209
  Receipt Date: 20101119
  Transmission Date: 20120403
  Serious: Yes (Other)
  Sender: FDA-Public Use
  Company Number: US-GLAXOSMITHKLINE-A0803843A

PATIENT
  Age: 48 Year
  Sex: Female
  Weight: 100 kg

DRUGS (10)
  1. GLYBURIDE [Concomitant]
  2. COZAAR [Concomitant]
  3. ZETIA [Concomitant]
  4. AVANDIA [Suspect]
     Indication: TYPE 2 DIABETES MELLITUS
     Dosage: 4MG TWICE PER DAY
     Route: 048
     Dates: end: 20071201
  5. HYDROCHLOROTHIAZIDE [Concomitant]
  6. AVANDAMET [Suspect]
     Indication: TYPE 2 DIABETES MELLITUS
     Route: 048
     Dates: end: 20060524
  7. LIPITOR [Concomitant]
  8. AMBIEN [Concomitant]
  9. METFORMIN HCL [Concomitant]
  10. LIPITOR [Concomitant]

REACTIONS (1)
  - CARDIAC FAILURE CONGESTIVE [None]
